FAERS Safety Report 9223369 (Version 2)
Quarter: 2013Q2

REPORT INFORMATION
  Report Type: Spontaneous
  Country: US (occurrence: US)
  Receive Date: 20130410
  Receipt Date: 20130417
  Transmission Date: 20140414
  Serious: Yes (Death, Hospitalization)
  Sender: FDA-Public Use
  Company Number: US-TEVA-397130USA

PATIENT
  Age: 42 Year
  Sex: Male

DRUGS (6)
  1. ACTIQ [Suspect]
     Indication: CANCER PAIN
     Dosage: Q 3 HOURS
     Route: 002
  2. MAFFA [Concomitant]
  3. ABRAXANE [Concomitant]
  4. IFOSFAMIDE [Concomitant]
  5. GEMZAR [Concomitant]
  6. SNA [Concomitant]

REACTIONS (2)
  - Death [Fatal]
  - Pneumonia [Fatal]
